FAERS Safety Report 8630561 (Version 2)
Quarter: 2012Q4

REPORT INFORMATION
  Report Type: 
  Country: GB (occurrence: GB)
  Receive Date: 20120622
  Receipt Date: 20121023
  Transmission Date: 20130627
  Serious: Yes (Death)
  Sender: FDA-Public Use
  Company Number: GB-ROCHE-1080801

PATIENT
  Age: 87 Year

DRUGS (1)
  1. LUCENTIS [Suspect]
     Indication: PRODUCT USED FOR UNKNOWN INDICATION
     Dosage: 4 injections in left eye
     Route: 050

REACTIONS (1)
  - Death [Fatal]
